FAERS Safety Report 25286394 (Version 2)
Quarter: 2025Q2

REPORT INFORMATION
  Report Type: Spontaneous
  Country: CN (occurrence: CN)
  Receive Date: 20250509
  Receipt Date: 20250521
  Transmission Date: 20250717
  Serious: Yes (Other)
  Sender: NOVO NORDISK
  Company Number: CN-NOVOPROD-1423229

PATIENT
  Age: 70 Year
  Sex: Male
  Weight: 75 kg

DRUGS (2)
  1. NOVOLIN R [Suspect]
     Active Substance: INSULIN HUMAN
     Indication: Product used for unknown indication
     Dosage: 22 ARBITRARY UNITS, QD MORNING
  2. HENAGLIFLOZIN [Concomitant]
     Indication: Diabetes mellitus

REACTIONS (2)
  - Retinal haemorrhage [Unknown]
  - Diabetic complication [Unknown]
